FAERS Safety Report 8811167 (Version 1)
Quarter: 2012Q4

REPORT INFORMATION
  Report Type: Spontaneous
  Country: US (occurrence: None)
  Receive Date: 20120925
  Receipt Date: 20120925
  Transmission Date: 20130627
  Serious: Yes (Other)
  Sender: FDA-Public Use
  Company Number: None

PATIENT
  Age: 76 Year
  Sex: Female
  Weight: 64.41 kg

DRUGS (2)
  1. XARELTO [Suspect]
     Indication: CARDIAC DISORDER
     Dosage: Morning 1 pill, swallowed
     Route: 048
     Dates: start: 201207, end: 201208
  2. METOPROLOL [Suspect]
     Dosage: Metoprolol 1 pill evening swallowed
     Route: 048
     Dates: start: 201207, end: 201208

REACTIONS (2)
  - Amnesia [None]
  - Fluid retention [None]
